FAERS Safety Report 18648939 (Version 1)
Quarter: 2020Q4

REPORT INFORMATION
  Report Type: Spontaneous
  Country: DE (occurrence: DE)
  Receive Date: 20201222
  Receipt Date: 20201222
  Transmission Date: 20210114
  Serious: Yes (Hospitalization, Other)
  Sender: FDA-Public Use
  Company Number: DE-PFIZER INC-2020502361

PATIENT
  Sex: Female

DRUGS (1)
  1. CYTOTEC [Suspect]
     Active Substance: MISOPROSTOL
     Indication: LABOUR INDUCTION
     Dosage: UNK
     Dates: start: 201901

REACTIONS (5)
  - Neonatal dyspnoea [Recovered/Resolved]
  - Thyroid disorder [Recovered/Resolved]
  - Maternal exposure during delivery [Unknown]
  - Cardiovascular disorder [Recovered/Resolved]
  - Apparent life threatening event [Unknown]

NARRATIVE: CASE EVENT DATE: 2019
